FAERS Safety Report 5368931-6 (Version None)
Quarter: 2007Q2

REPORT INFORMATION
  Report Type: 
  Country: None (occurrence: None)
  Receive Date: 20070625
  Receipt Date: 20061214
  Transmission Date: 20071010
  Serious: No
  Sender: FDA-Public Use
  Company Number: US-ASTRAZENECA-2006UW27998

PATIENT
  Age: 52 Year
  Sex: Male

DRUGS (8)
  1. CRESTOR [Suspect]
     Route: 048
  2. METOPROLOL TARTRATE [Concomitant]
  3. ZETIA [Concomitant]
  4. AVANDIA [Concomitant]
  5. NIASPAN [Concomitant]
  6. PLAVIX [Concomitant]
  7. HUMALOG [Concomitant]
  8. LANTUS [Concomitant]

REACTIONS (2)
  - HYPOAESTHESIA [None]
  - MUSCLE SPASMS [None]
